FAERS Safety Report 22089887 (Version 1)
Quarter: 2023Q1

REPORT INFORMATION
  Report Type: Spontaneous
  Country: US (occurrence: US)
  Receive Date: 20230313
  Receipt Date: 20230313
  Transmission Date: 20230418
  Serious: No
  Sender: FDA-Public Use
  Company Number: US-INCYTE CORPORATION-2023IN002277

PATIENT

DRUGS (1)
  1. JAKAFI [Suspect]
     Active Substance: RUXOLITINIB
     Indication: Progressive multifocal leukoencephalopathy
     Dosage: 10 MILLIGRAM, BID
     Route: 048

REACTIONS (3)
  - Memory impairment [Unknown]
  - Confusional state [Unknown]
  - Off label use [Unknown]
